FAERS Safety Report 4673699-2 (Version None)
Quarter: 2005Q2

REPORT INFORMATION
  Report Type: 
  Country: None (occurrence: None)
  Receive Date: 20050523
  Receipt Date: 20050506
  Transmission Date: 20051028
  Serious: No
  Sender: FDA-Public Use
  Company Number: 2005-00138

PATIENT
  Age: 80 Year
  Sex: Female

DRUGS (12)
  1. VELCADE [Suspect]
     Indication: MULTIPLE MYELOMA
     Dosage: SEE IMAGE
     Dates: start: 20030724
  2. VELCADE [Suspect]
     Indication: MULTIPLE MYELOMA
     Dosage: SEE IMAGE
     Dates: start: 20030923
  3. VELCADE [Suspect]
  4. COUMADIN [Concomitant]
  5. OXYCONTIN [Concomitant]
  6. REGLAN [Concomitant]
  7. NEPHRO-VIE RX (ASCORBIC ACID, VITATAMIN B NOS, FOLIC ACID) [Concomitant]
  8. LEVOXYL [Concomitant]
  9. PROAMATINE (MIDODRINE HYDROCHLORIDE0 [Concomitant]
  10. ALPRAZOLAM [Concomitant]
  11. SORBITOL (SORBITOL) [Concomitant]
  12. NEURONTIN [Concomitant]

REACTIONS (6)
  - CONDITION AGGRAVATED [None]
  - CONJUNCTIVITIS [None]
  - DIALYSIS [None]
  - NEUROPATHY PERIPHERAL [None]
  - PAIN [None]
  - PERFORMANCE STATUS DECREASED [None]
